FAERS Safety Report 5315973-2 (Version None)
Quarter: 2007Q2

REPORT INFORMATION
  Report Type: 
  Country: None (occurrence: None)
  Receive Date: 20070503
  Receipt Date: 20070419
  Transmission Date: 20071010
  Serious: Yes (Other)
  Sender: FDA-Public Use
  Company Number: JP-ROCHE-486797

PATIENT
  Age: 12 Year
  Sex: Female
  Weight: 39 kg

DRUGS (4)
  1. TAMIFLU [Suspect]
     Route: 048
     Dates: start: 20070223, end: 20070223
  2. ASVERIN [Concomitant]
     Route: 048
     Dates: start: 20070223, end: 20070227
  3. MUCODYNE [Concomitant]
     Dosage: DOSE FORM REPORTED AS FINE GRANULE.
     Route: 048
     Dates: start: 20070223, end: 20070227
  4. CALONAL [Concomitant]
     Dosage: DOSE FORM REPORTED AS FINE GRANULE.300
     Route: 048
     Dates: start: 20070223

REACTIONS (1)
  - CONVULSION [None]
